FAERS Safety Report 7365677-X (Version None)
Quarter: 2011Q1

REPORT INFORMATION
  Report Type: 
  Country: None (occurrence: None)
  Receive Date: 20110322
  Receipt Date: 20100712
  Transmission Date: 20110831
  Serious: Yes (Hospitalization, Other)
  Sender: FDA-Public Use
  Company Number: US-BAYER-201019175NA

PATIENT
  Sex: Female
  Weight: 75 kg

DRUGS (7)
  1. YAZ [Suspect]
     Indication: PRODUCT USED FOR UNKNOWN INDICATION
     Route: 048
     Dates: start: 20060101, end: 20080101
  2. CORGARD [Concomitant]
     Indication: HEADACHE
     Route: 065
     Dates: start: 20080101
  3. WELLBUTRIN [Concomitant]
     Indication: DEPRESSION
     Route: 065
     Dates: start: 20070101, end: 20080615
  4. NADOLOL [Concomitant]
     Dosage: 20 MG, UNK
  5. PENICILLIN [Concomitant]
     Indication: ANTIBIOTIC THERAPY
     Route: 065
     Dates: start: 20030101
  6. PRIMACARE [Concomitant]
     Indication: PRENATAL CARE
     Route: 065
     Dates: start: 20060101
  7. BUPROPION [Concomitant]
     Indication: ANTIBIOTIC THERAPY
     Route: 065
     Dates: start: 20070101

REACTIONS (6)
  - MUSCULOSKELETAL PAIN [None]
  - PLEURITIC PAIN [None]
  - PULMONARY EMBOLISM [None]
  - DYSPNOEA [None]
  - HEART RATE INCREASED [None]
  - LIMB DISCOMFORT [None]
